FAERS Safety Report 6468842-9 (Version None)
Quarter: 2009Q4

REPORT INFORMATION
  Report Type: 
  Country: None (occurrence: None)
  Receive Date: 20091203
  Receipt Date: 20070920
  Transmission Date: 20100525
  Serious: Yes (Hospitalization, Other)
  Sender: FDA-Public Use
  Company Number: US-ELI_LILLY_AND_COMPANY-US200602000655

PATIENT
  Sex: Female
  Weight: 39.455 kg

DRUGS (14)
  1. FORTEO [Suspect]
     Indication: OSTEOPOROSIS
     Dosage: 20 UG, DAILY (1/D)
     Dates: start: 20050331
  2. FORTEO [Suspect]
     Dosage: 20 UG, DAILY (1/D)
  3. FORTEO [Suspect]
     Dosage: 20 UG, DAILY (1/D)
     Dates: start: 20070401, end: 20070501
  4. FISH OIL [Concomitant]
     Dosage: UNK, UNK
  5. CHLORPHENIRAMINE [Concomitant]
     Dosage: UNK, UNK
  6. CALCIUM W/VITAMIN D /00944201/ [Concomitant]
     Dosage: UNK, UNK
  7. VITAMIN B-12 [Concomitant]
     Dosage: UNK, UNK
  8. VITAMIN E /00110501/ [Concomitant]
     Dosage: UNK, UNK
  9. ASCORBIC ACID [Concomitant]
     Dosage: UNK, UNK
  10. VITAMIN B COMPLEX CAP [Concomitant]
     Dosage: UNK, UNK
  11. MULTIVITAMIN [Concomitant]
     Dosage: UNK, UNK
  12. SELENIUM [Concomitant]
     Dosage: UNK, UNK
  13. ESTRADIOL [Concomitant]
     Indication: OESTRADIOL DECREASED
     Dates: end: 20060901
  14. ASPIRIN [Concomitant]
     Dosage: UNK, DAILY (1/D)

REACTIONS (8)
  - ABDOMINAL PAIN [None]
  - ASTHENIA [None]
  - FALL [None]
  - FATIGUE [None]
  - GASTROINTESTINAL DISORDER [None]
  - HIP FRACTURE [None]
  - MALAISE [None]
  - WEIGHT GAIN POOR [None]
